FAERS Safety Report 9688509 (Version 1)
Quarter: 2013Q4

REPORT INFORMATION
  Report Type: Spontaneous
  Country: FR (occurrence: FR)
  Receive Date: 20131114
  Receipt Date: 20131114
  Transmission Date: 20140711
  Serious: Yes (Hospitalization)
  Sender: FDA-Public Use
  Company Number: FR-JNJFOC-20131101740

PATIENT
  Age: 24 Year
  Sex: Male

DRUGS (3)
  1. HALDOL DECANOAS [Suspect]
     Indication: SCHIZOPHRENIA
     Dosage: 2 AMPOULES/4 WEEKS
     Route: 030
  2. HALDOL DECANOAS [Suspect]
     Indication: SCHIZOPHRENIA
     Route: 030
     Dates: start: 20121217, end: 20121220
  3. LEPTICUR [Suspect]
     Indication: SCHIZOPHRENIA
     Route: 065

REACTIONS (9)
  - Rhabdomyolysis [Recovering/Resolving]
  - Vomiting [Recovering/Resolving]
  - Diarrhoea haemorrhagic [Recovering/Resolving]
  - Hyperhidrosis [Recovering/Resolving]
  - Myalgia [Recovering/Resolving]
  - Blood creatine phosphokinase increased [Recovering/Resolving]
  - Renal failure [Recovering/Resolving]
  - Hepatocellular injury [Unknown]
  - Decreased appetite [Recovering/Resolving]
